FAERS Safety Report 14763911 (Version 2)
Quarter: 2018Q2

REPORT INFORMATION
  Report Type: Spontaneous
  Country: ES (occurrence: ES)
  Receive Date: 20180416
  Receipt Date: 20180522
  Transmission Date: 20180711
  Serious: Yes (Other)
  Sender: FDA-Public Use
  Company Number: ES-ROCHE-2104780

PATIENT
  Age: 63 Year
  Sex: Male
  Weight: 97 kg

DRUGS (2)
  1. RIBAVIRIN. [Suspect]
     Active Substance: RIBAVIRIN
     Indication: CHRONIC HEPATITIS C
     Dosage: LAST DOSE ON 22/DEC/2015
     Route: 065
     Dates: start: 20150929
  2. SOVALDI [Suspect]
     Active Substance: SOFOSBUVIR
     Indication: CHRONIC HEPATITIS C
     Dosage: LAST DOSE ON 22/DEC/2015
     Route: 065
     Dates: start: 20150929

REACTIONS (4)
  - Treatment failure [Unknown]
  - Genotype drug resistance test positive [Unknown]
  - Ascites [Recovered/Resolved]
  - Hepatocellular carcinoma [Recovered/Resolved]
